FAERS Safety Report 6046638-X (Version None)
Quarter: 2009Q1

REPORT INFORMATION
  Report Type: 
  Country: None (occurrence: None)
  Receive Date: 20090122
  Receipt Date: 20090114
  Transmission Date: 20090719
  Serious: Yes (Hospitalization)
  Sender: FDA-Public Use
  Company Number: GB-ROCHE-608375

PATIENT
  Sex: Female
  Weight: 85.3 kg

DRUGS (13)
  1. ORLISTAT [Suspect]
     Indication: OBESITY
     Route: 048
     Dates: start: 20080825
  2. SYMBICORT [Concomitant]
     Indication: ASTHMA
     Dosage: SYMBICORT 200/6, FORM: PUFFS
     Route: 055
  3. BRICANYL [Concomitant]
     Indication: ASTHMA
     Route: 055
  4. LAMOTRIGINE [Concomitant]
     Indication: BIPOLAR DISORDER
     Route: 048
  5. LAMOTRIGINE [Concomitant]
     Route: 048
  6. LAMOTRIGINE [Concomitant]
     Route: 048
  7. CLONAZEPAM [Concomitant]
     Indication: BIPOLAR DISORDER
     Route: 048
  8. CARBAMAZEPINE [Concomitant]
     Indication: MOOD SWINGS
     Dosage: SLOW RELEASE
     Route: 048
  9. ZOLPIDEM [Concomitant]
     Indication: SLEEP DISORDER THERAPY
     Route: 048
  10. VITAMIN B [Concomitant]
     Dosage: VITAMIN B COMPOUND STRONG TABLET
     Route: 048
  11. FLUPENTIXOL [Concomitant]
     Indication: ANXIETY
     Dosage: 1 IN THE MORNING AND 2 AT NIGHT
     Route: 048
  12. LIOTHYRONINE SODIUM [Concomitant]
     Dosage: INDICATION: HELPS WITH THE SHORTER DAYS WHEN ITS DARK
     Route: 048
  13. PHENELZINE [Concomitant]
     Indication: ANTIDEPRESSANT THERAPY
     Dosage: DRUG: PHENELCINE
     Route: 048

REACTIONS (2)
  - HYPOTENSION [None]
  - LOWER RESPIRATORY TRACT INFECTION [None]
